FAERS Safety Report 7108733-3 (Version None)
Quarter: 2010Q4

REPORT INFORMATION
  Report Type: 
  Country: None (occurrence: None)
  Receive Date: 20101112
  Receipt Date: 20101029
  Transmission Date: 20110411
  Serious: Yes (Other)
  Sender: FDA-Public Use
  Company Number: 011689

PATIENT
  Age: 3 Year
  Sex: Male

DRUGS (7)
  1. BUSULFEX [Suspect]
     Indication: BONE MARROW CONDITIONING REGIMEN
     Dosage: 0.8 MG/KG, Q6HR, INTRAVENOUS
     Route: 042
  2. FLUDARABINE PHOSPHATE [Concomitant]
  3. THYMOGLOBULIN [Concomitant]
  4. METHOTREXATE [Concomitant]
  5. CYCLOSPORINE [Concomitant]
  6. G-CSF (GRANULOCYTE COLONY STIMULATING FACTOR) [Concomitant]
  7. RITUXIMAB [Concomitant]

REACTIONS (4)
  - ACUTE GRAFT VERSUS HOST DISEASE [None]
  - HAEMATURIA [None]
  - HEPATOTOXICITY [None]
  - LYMPHOPROLIFERATIVE DISORDER [None]
